FAERS Safety Report 9474255 (Version 1)
Quarter: 2013Q3

REPORT INFORMATION
  Report Type: Other
  Country: US (occurrence: US)
  Receive Date: 20130823
  Receipt Date: 20130823
  Transmission Date: 20140515
  Serious: Yes (Other)
  Sender: FDA-Public Use
  Company Number: US-BRISTOL-MYERS SQUIBB COMPANY-19214097

PATIENT
  Age: 63 Year
  Sex: Male

DRUGS (6)
  1. TRIAMCINOLONE [Suspect]
     Indication: CYSTOID MACULAR OEDEMA
     Route: 031
     Dates: start: 201202
  2. TRIAMCINOLONE [Suspect]
     Indication: RETINOPATHY
     Route: 031
     Dates: start: 201202
  3. TRIAMCINOLONE [Suspect]
     Indication: DIABETIC RETINAL OEDEMA
     Route: 031
     Dates: start: 201202
  4. BEVACIZUMAB [Suspect]
     Indication: CYSTOID MACULAR OEDEMA
     Route: 031
     Dates: start: 201202
  5. BEVACIZUMAB [Suspect]
     Indication: DIABETIC RETINAL OEDEMA
     Route: 031
     Dates: start: 201202
  6. BEVACIZUMAB [Suspect]
     Indication: RETINOPATHY
     Route: 031
     Dates: start: 201202

REACTIONS (2)
  - Mycotic endophthalmitis [Recovering/Resolving]
  - Product contamination [Unknown]
